FAERS Safety Report 8001985-7 (Version None)
Quarter: 2011Q4

REPORT INFORMATION
  Report Type: 
  Country: None (occurrence: None)
  Receive Date: 20111220
  Receipt Date: 20111201
  Transmission Date: 20120403
  Serious: Yes (Hospitalization, Other)
  Sender: FDA-Public Use
  Company Number: JPI-P-015554

PATIENT
  Age: 47 Year
  Sex: Female
  Weight: 85.7298 kg

DRUGS (14)
  1. ACETAMINOPHEN AND HYDROCODONE [Concomitant]
  2. UNSPECIFIED BENODIAZEPINES [Suspect]
     Indication: PRODUCT USED FOR UNKNOWN INDICATION
     Dosage: (UNKNOWN)
  3. IBUPROFEN [Concomitant]
  4. HYDROMORPHONE HCL [Concomitant]
  5. PHENELZINE [Concomitant]
  6. CLONAZEPAM [Concomitant]
  7. UNSPECIFIED NARCOTICS [Suspect]
     Indication: PRODUCT USED FOR UNKNOWN INDICATION
     Dosage: (UNKNOWN)
  8. XYREM [Suspect]
     Indication: CATAPLEXY
     Dosage: 6 GM (3 GM, 2 IN 1 D), ORAL (UNKNOWN, 1 IN 1 D), ORAL 6 GM (3 GM, 2 IN 1 D), ORAL 6 GM (6 GM, 1 IN 1
     Route: 048
     Dates: start: 20050407
  9. XYREM [Suspect]
     Indication: FIBROMYALGIA
     Dosage: 6 GM (3 GM, 2 IN 1 D), ORAL (UNKNOWN, 1 IN 1 D), ORAL 6 GM (3 GM, 2 IN 1 D), ORAL 6 GM (6 GM, 1 IN 1
     Route: 048
     Dates: start: 20050407
  10. XYREM [Suspect]
     Indication: CATAPLEXY
     Dosage: 6 GM (3 GM, 2 IN 1 D), ORAL (UNKNOWN, 1 IN 1 D), ORAL 6 GM (3 GM, 2 IN 1 D), ORAL 6 GM (6 GM, 1 IN 1
     Route: 048
     Dates: start: 20041108
  11. XYREM [Suspect]
     Indication: FIBROMYALGIA
     Dosage: 6 GM (3 GM, 2 IN 1 D), ORAL (UNKNOWN, 1 IN 1 D), ORAL 6 GM (3 GM, 2 IN 1 D), ORAL 6 GM (6 GM, 1 IN 1
     Route: 048
     Dates: start: 20041108
  12. XYREM [Suspect]
     Indication: CATAPLEXY
     Dosage: 6 GM (3 GM, 2 IN 1 D), ORAL (UNKNOWN, 1 IN 1 D), ORAL 6 GM (3 GM, 2 IN 1 D), ORAL 6 GM (6 GM, 1 IN 1
     Route: 048
     Dates: end: 20110617
  13. XYREM [Suspect]
     Indication: FIBROMYALGIA
     Dosage: 6 GM (3 GM, 2 IN 1 D), ORAL (UNKNOWN, 1 IN 1 D), ORAL 6 GM (3 GM, 2 IN 1 D), ORAL 6 GM (6 GM, 1 IN 1
     Route: 048
     Dates: end: 20110617
  14. ZALEPLON [Concomitant]

REACTIONS (10)
  - FALL [None]
  - APNOEA [None]
  - DRUG INEFFECTIVE [None]
  - DRY EYE [None]
  - MULTIPLE DRUG OVERDOSE [None]
  - MUSCULAR WEAKNESS [None]
  - DEHYDRATION [None]
  - ACCIDENTAL OVERDOSE [None]
  - MENTAL STATUS CHANGES [None]
  - DYSSTASIA [None]
